FAERS Safety Report 9881890 (Version 1)
Quarter: 2014Q1

REPORT INFORMATION
  Report Type: Spontaneous
  Country: GB (occurrence: GB)
  Receive Date: 20140207
  Receipt Date: 20140207
  Transmission Date: 20141002
  Serious: Yes (Other)
  Sender: FDA-Public Use
  Company Number: GB-TEVA-459056ISR

PATIENT
  Age: 49 Year
  Sex: Male
  Weight: 108 kg

DRUGS (2)
  1. QUETIAPINE [Suspect]
     Indication: INSOMNIA
     Dates: start: 201209, end: 201302
  2. SODIUM BICARBONATE [Concomitant]
     Dates: start: 20121113, end: 20121208

REACTIONS (12)
  - Disinhibition [Recovered/Resolved]
  - Sexually inappropriate behaviour [Recovered/Resolved]
  - Hangover [Unknown]
  - Dizziness [Unknown]
  - Ingrowing nail [Recovered/Resolved]
  - Libido increased [Unknown]
  - Visual acuity reduced [Unknown]
  - Deafness unilateral [Unknown]
  - Anger [Unknown]
  - Foreign body [Unknown]
  - Tongue biting [Unknown]
  - Fall [Unknown]
